FAERS Safety Report 17763707 (Version 1)
Quarter: 2020Q2

REPORT INFORMATION
  Report Type: Spontaneous
  Country: FR (occurrence: FR)
  Receive Date: 20200510
  Receipt Date: 20200510
  Transmission Date: 20200714
  Serious: Yes (Life-Threatening)
  Sender: FDA-Public Use
  Company Number: FR-CADILA HEALTHCARE LIMITED-FR-ZYDUS-034030

PATIENT

DRUGS (22)
  1. RAMIPRIL. [Suspect]
     Active Substance: RAMIPRIL
     Indication: PRODUCT ADMINISTRATION ERROR
     Dosage: 2.5 MILLIGRAM,2.5 MG, UNK
     Route: 048
     Dates: start: 20180212, end: 20180212
  2. SACUBITRIL,VALSARTAN [Concomitant]
     Active Substance: SACUBITRIL\VALSARTAN
     Indication: CARDIAC FAILURE
     Dosage: 2 DOSAGE FORM,2 DF, QD,(INTERVAL :1 DAYS)
     Route: 048
     Dates: end: 20180206
  3. LOXEN (FRANCE) [Suspect]
     Active Substance: NICARDIPINE HYDROCHLORIDE
     Indication: PRODUCT ADMINISTRATION ERROR
     Dosage: 50 MILLIGRAM,50 MG
     Route: 048
     Dates: start: 20180212, end: 20180212
  4. BISOPROLOL FUMARATE. [Suspect]
     Active Substance: BISOPROLOL FUMARATE
     Indication: MYOCARDIAL ISCHAEMIA
     Dosage: 1.25 MILLIGRAM,1.25 MG, QD,(INTERVAL :1 DAYS)
     Route: 048
     Dates: end: 20180213
  5. ATENOLOL. [Suspect]
     Active Substance: ATENOLOL
     Indication: PRODUCT ADMINISTRATION ERROR
     Dosage: 7.5 MILLIGRAM,7.5 MG, UNK
     Route: 048
     Dates: start: 20180212, end: 20180212
  6. NOVORAPID [Suspect]
     Active Substance: INSULIN ASPART
     Indication: DIABETES MELLITUS
     Dosage: AS NEEDED,(INTERVAL :1 DAYS)
     Route: 058
     Dates: start: 20180206
  7. OXYBUTYNIN. [Suspect]
     Active Substance: OXYBUTYNIN CHLORIDE
     Indication: PRODUCT ADMINISTRATION ERROR
     Dosage: 5 MILLIGRAM,5 MG, UNK
     Route: 048
     Dates: start: 20180212, end: 20180212
  8. DIFFU-K [Suspect]
     Active Substance: POTASSIUM CHLORIDE
     Indication: HYPOKALAEMIA
     Dosage: 600 MILLIGRAM,600MG, TID
     Route: 048
     Dates: start: 20180212
  9. FUROSEMIDE. [Suspect]
     Active Substance: FUROSEMIDE
     Indication: CARDIAC FAILURE
     Dosage: 40 MILLIGRAM,(INTERVAL :1 DAYS)
     Route: 048
     Dates: start: 20180209, end: 20180216
  10. DIFFU-K [Suspect]
     Active Substance: POTASSIUM CHLORIDE
     Indication: HYPOKALAEMIA
     Dosage: 1800 MILLIGRAM,1800 MG, TID,(INTERVAL :1 DAYS)
     Route: 048
     Dates: start: 20180206, end: 20180212
  11. LYRICA [Suspect]
     Active Substance: PREGABALIN
     Indication: PRODUCT ADMINISTRATION ERROR
     Dosage: 25 MILLIGRAM,25 MG, UNK
     Route: 048
     Dates: start: 20180212, end: 20180212
  12. STILNOX [Concomitant]
     Active Substance: ZOLPIDEM TARTRATE
     Indication: SLEEP DISORDER
     Dosage: 10 MILLIGRAM,10 MG, QD,(INTERVAL :1 DAYS)
     Route: 048
     Dates: end: 20180211
  13. ALLOPURINOL. [Concomitant]
     Active Substance: ALLOPURINOL
     Indication: PRODUCT USED FOR UNKNOWN INDICATION
     Dosage: 100 MILLIGRAM,100 MG, QD,(INTERVAL :1 DAYS)
     Route: 048
  14. STILNOX [Concomitant]
     Active Substance: ZOLPIDEM TARTRATE
     Indication: SLEEP DISORDER
     Dosage: 10 MILLIGRAM,(INTERVAL :1 DAYS)
     Route: 048
     Dates: end: 20180211
  15. KARDEGIC [Suspect]
     Active Substance: ASPIRIN DL-LYSINE
     Indication: MYOCARDIAL ISCHAEMIA
     Dosage: 75 MILLIGRAM,75 MG, QD, SAUF 18-FEB-2012 + 75MG,(INTERVAL :1 DAYS)
     Route: 048
     Dates: start: 20120218
  16. ENTRESTO [Concomitant]
     Active Substance: SACUBITRIL\VALSARTAN
     Indication: CARDIAC FAILURE
     Dosage: 2 DOSAGE FORM,2 DF, QD,(INTERVAL :1 DAYS)
     Route: 048
     Dates: end: 20180206
  17. JANUVIA [Suspect]
     Active Substance: SITAGLIPTIN PHOSPHATE
     Indication: TYPE 2 DIABETES MELLITUS
     Dosage: 50 MILLIGRAM,50 MG, QD,(INTERVAL :1 DAYS)
     Route: 048
     Dates: start: 20180208
  18. ATORVASTATIN [Concomitant]
     Active Substance: ATORVASTATIN
     Indication: DYSLIPIDAEMIA
     Dosage: 20 MILLIGRAM,20 MG, QD,(INTERVAL :1 DAYS)
     Route: 048
  19. ALLOPURINOL. [Concomitant]
     Active Substance: ALLOPURINOL
     Indication: PRODUCT USED FOR UNKNOWN INDICATION
     Dosage: 100 MILLIGRAM,100 MG, QD,(INTERVAL :1 DAYS)
     Route: 048
  20. ATORVASTATIN [Concomitant]
     Active Substance: ATORVASTATIN
     Indication: DYSLIPIDAEMIA
     Dosage: 20 MILLIGRAM,20 MG, QD,(INTERVAL :1 DAYS)
     Route: 048
  21. METFORMIN [Concomitant]
     Active Substance: METFORMIN HYDROCHLORIDE
     Indication: TYPE 2 DIABETES MELLITUS
     Dosage: 500 MILLIGRAM,500 MG, TID,(INTERVAL :1 DAYS)
     Route: 048
  22. METFORMIN [Concomitant]
     Active Substance: METFORMIN HYDROCHLORIDE
     Indication: TYPE 2 DIABETES MELLITUS
     Dosage: 500 MILLIGRAM,500 MG, TID,(INTERVAL :1 DAYS)
     Route: 048

REACTIONS (4)
  - Confusional state [Recovered/Resolved]
  - Cardiac failure [Not Recovered/Not Resolved]
  - Cardiovascular insufficiency [Not Recovered/Not Resolved]
  - Cardiac output decreased [Not Recovered/Not Resolved]

NARRATIVE: CASE EVENT DATE: 20180212
